FAERS Safety Report 7401199-5 (Version None)
Quarter: 2011Q2

REPORT INFORMATION
  Report Type: 
  Country: None (occurrence: None)
  Receive Date: 20110407
  Receipt Date: 20110403
  Transmission Date: 20111010
  Serious: Yes (Other)
  Sender: FDA-Public Use
  Company Number: US-ABBOTT-11P-163-0716203-00

PATIENT
  Sex: Male
  Weight: 71.732 kg

DRUGS (1)
  1. HUMIRA [Suspect]
     Indication: PSORIATIC ARTHROPATHY
     Route: 058
     Dates: start: 20101201, end: 20110402

REACTIONS (7)
  - NASAL CONGESTION [None]
  - DYSPNOEA [None]
  - HEADACHE [None]
  - PRESYNCOPE [None]
  - FATIGUE [None]
  - ANAPHYLACTOID REACTION [None]
  - ASTHENIA [None]
